FAERS Safety Report 12273617 (Version 1)
Quarter: 2016Q2

REPORT INFORMATION
  Report Type: Report from Study
  Country: US (occurrence: US)
  Receive Date: 20160415
  Receipt Date: 20160415
  Transmission Date: 20160815
  Serious: Yes (Other)
  Sender: FDA-Public Use
  Company Number: US-ABBVIE-16K-163-1604100-00

PATIENT
  Sex: Female

DRUGS (1)
  1. HUMIRA [Suspect]
     Active Substance: ADALIMUMAB
     Indication: PSORIASIS
     Route: 058
     Dates: start: 20150906

REACTIONS (4)
  - Gastritis [Recovering/Resolving]
  - Mass [Recovered/Resolved]
  - Ulcer [Recovering/Resolving]
  - Dysphagia [Recovered/Resolved]
